FAERS Safety Report 8334099-7 (Version None)
Quarter: 2012Q1

REPORT INFORMATION
  Report Type: 
  Country: None (occurrence: None)
  Receive Date: 20120328
  Receipt Date: 20100513
  Transmission Date: 20120608
  Serious: Yes (Hospitalization, Disabling, Other)
  Sender: FDA-Public Use
  Company Number: PHHY2010US29519

PATIENT
  Age: 46 Year
  Sex: Female
  Weight: 196 kg

DRUGS (1)
  1. VALTURNA [Suspect]
     Indication: HYPERTENSION
     Dosage: 150/100 MG QD, ORAL
     Route: 048
     Dates: start: 20100429, end: 20100430

REACTIONS (2)
  - PARAESTHESIA ORAL [None]
  - SWOLLEN TONGUE [None]
